FAERS Safety Report 21405258 (Version 1)
Quarter: 2022Q4

REPORT INFORMATION
  Report Type: Report from Study
  Country: BR (occurrence: BR)
  Receive Date: 20221004
  Receipt Date: 20221004
  Transmission Date: 20230112
  Serious: Yes (Other)
  Sender: FDA-Public Use
  Company Number: BR-JNJFOC-20220954860

PATIENT
  Age: 12 Year
  Sex: Female
  Weight: 46 kg

DRUGS (1)
  1. INFLIXIMAB [Suspect]
     Active Substance: INFLIXIMAB
     Indication: Uveitis
     Route: 041
     Dates: start: 202201

REACTIONS (2)
  - Crohn^s disease [Unknown]
  - Off label use [Unknown]
